FAERS Safety Report 20928922 (Version 3)
Quarter: 2022Q4

REPORT INFORMATION
  Report Type: Spontaneous
  Country: US (occurrence: US)
  Receive Date: 20220608
  Receipt Date: 20221011
  Transmission Date: 20230112
  Serious: No
  Sender: FDA-Public Use
  Company Number: US-BRISTOL-MYERS SQUIBB COMPANY-2022-039890

PATIENT
  Age: 70 Year
  Sex: Male

DRUGS (1)
  1. REVLIMID [Suspect]
     Active Substance: LENALIDOMIDE
     Indication: Plasma cell myeloma
     Dosage: 1 CAPSULE (20 MILLIGRAM TOTAL) DAILY 21 DAYS ON AND 7 DAYS OFF
     Route: 048
     Dates: start: 20210828

REACTIONS (2)
  - Nasopharyngitis [Unknown]
  - Diarrhoea [Not Recovered/Not Resolved]
